FAERS Safety Report 4611984-0 (Version None)
Quarter: 2005Q2

REPORT INFORMATION
  Report Type: 
  Country: None (occurrence: None)
  Receive Date: 20050308
  Receipt Date: 20050201
  Transmission Date: 20051028
  Serious: Yes (Other)
  Sender: FDA-Public Use
  Company Number: 2005UW00393

PATIENT
  Age: 78 Year
  Sex: Female
  Weight: 63.05 kg

DRUGS (6)
  1. CRESTOR [Suspect]
     Indication: HYPERLIPIDAEMIA
     Dosage: 10 MG PO
     Route: 048
     Dates: start: 20040519, end: 20041201
  2. FOSAMAX [Suspect]
     Indication: OSTEOPENIA
     Dosage: 70 MG WEEK PO
     Route: 048
     Dates: start: 20040922, end: 20041201
  3. TOPROL-XL [Concomitant]
  4. ELAVIL [Concomitant]
  5. SYNTHROID [Concomitant]
  6. PREVACID [Concomitant]

REACTIONS (2)
  - ARTHRALGIA [None]
  - MYALGIA [None]
